FAERS Safety Report 5055758-8 (Version None)
Quarter: 2006Q3

REPORT INFORMATION
  Report Type: 
  Country: None (occurrence: None)
  Receive Date: 20060714
  Receipt Date: 20060703
  Transmission Date: 20061208
  Serious: Yes (Hospitalization)
  Sender: FDA-Public Use
  Company Number: 227029

PATIENT
  Age: 79 Year
  Sex: Male

DRUGS (2)
  1. AVASTIN [Suspect]
     Indication: MACULAR DEGENERATION
  2. COUMADIN [Concomitant]

REACTIONS (4)
  - DYSARTHRIA [None]
  - DYSPHAGIA [None]
  - HAEMORRHAGE INTRACRANIAL [None]
  - SPEECH DISORDER [None]
